FAERS Safety Report 4835132-7 (Version None)
Quarter: 2005Q4

REPORT INFORMATION
  Report Type: 
  Country: None (occurrence: None)
  Receive Date: 20051114
  Receipt Date: 20051024
  Transmission Date: 20060501
  Serious: Yes (Other)
  Sender: FDA-Public Use
  Company Number: USA0509109561

PATIENT
  Age: 65 Year
  Sex: Male

DRUGS (2)
  1. CIALIS [Suspect]
     Dosage: 20 MG AS NEEDED
  2. LISINOPRIL [Concomitant]

REACTIONS (3)
  - CHEST DISCOMFORT [None]
  - DIZZINESS [None]
  - LOSS OF CONSCIOUSNESS [None]
